FAERS Safety Report 7331849-3 (Version None)
Quarter: 2011Q1

REPORT INFORMATION
  Report Type: 
  Country: None (occurrence: None)
  Receive Date: 20110304
  Receipt Date: 20100422
  Transmission Date: 20110831
  Serious: Yes (Other)
  Sender: FDA-Public Use
  Company Number: US-PFIZER INC-2010034438

PATIENT
  Sex: Female

DRUGS (2)
  1. DILANTIN [Suspect]
     Dosage: 30 MG, UNK
  2. DILANTIN [Suspect]
     Dosage: 100 MG, UNK

REACTIONS (1)
  - STEVENS-JOHNSON SYNDROME [None]
